FAERS Safety Report 7606699-0 (Version None)
Quarter: 2011Q3

REPORT INFORMATION
  Report Type: 
  Country: None (occurrence: None)
  Receive Date: 20110713
  Receipt Date: 20110629
  Transmission Date: 20111222
  Serious: Yes (Death)
  Sender: FDA-Public Use
  Company Number: NL-ROCHE-785432

PATIENT
  Sex: Male
  Weight: 110 kg

DRUGS (3)
  1. RIBAVIRIN [Suspect]
     Indication: HEPATITIS C
     Route: 048
     Dates: start: 20101018, end: 20110617
  2. PEGINTERFERON ALFA-2A [Suspect]
     Indication: HEPATITIS C
     Route: 058
     Dates: start: 20101018, end: 20110617
  3. EPOETIN BETA [Concomitant]
     Dosage: DOSE: 30000 WEEKLY
     Dates: start: 20110523

REACTIONS (1)
  - UROSEPSIS [None]
